FAERS Safety Report 5100716-8 (Version None)
Quarter: 2006Q3

REPORT INFORMATION
  Report Type: 
  Country: None (occurrence: None)
  Receive Date: 20060731
  Receipt Date: 20060517
  Transmission Date: 20061208
  Serious: No
  Sender: FDA-Public Use
  Company Number: 2006PV014004

PATIENT
  Age: 61 Year
  Sex: Male

DRUGS (7)
  1. BYETTA [Suspect]
     Indication: DIABETES MELLITUS NON-INSULIN-DEPENDENT
     Dosage: 5 MCG;BID;SC
     Route: 058
     Dates: start: 20060501
  2. ASPIRIN [Concomitant]
  3. LEXAPRO [Concomitant]
  4. ZESTORETIC [Concomitant]
  5. OXYCONTIN [Concomitant]
  6. NAPROSYN [Concomitant]
  7. PERCOCET [Concomitant]

REACTIONS (6)
  - ABDOMINAL DISTENSION [None]
  - ABDOMINAL PAIN UPPER [None]
  - DYSPEPSIA [None]
  - ERUCTATION [None]
  - NAUSEA [None]
  - REGURGITATION OF FOOD [None]
